FAERS Safety Report 6135968-9 (Version None)
Quarter: 2009Q1

REPORT INFORMATION
  Report Type: 
  Country: None (occurrence: None)
  Receive Date: 20090329
  Receipt Date: 20080529
  Transmission Date: 20090719
  Serious: No
  Sender: FDA-Public Use
  Company Number: US-BAUSCH-2008BL002388

PATIENT
  Age: 7 Year
  Sex: Male

DRUGS (1)
  1. LOTEMAX [Suspect]
     Indication: HYPERSENSITIVITY
     Route: 047
     Dates: start: 20080514, end: 20080528

REACTIONS (1)
  - VISUAL ACUITY REDUCED [None]
